FAERS Safety Report 10592272 (Version 2)
Quarter: 2014Q4

REPORT INFORMATION
  Report Type: Spontaneous
  Country: US (occurrence: US)
  Receive Date: 20141119
  Receipt Date: 20141208
  Transmission Date: 20150529
  Serious: Yes (Other)
  Sender: FDA-Public Use
  Company Number: US-AMGEN-USASP2014088535

PATIENT
  Age: 54 Year
  Sex: Female

DRUGS (1)
  1. ENBREL [Suspect]
     Active Substance: ETANERCEPT
     Indication: PSORIASIS
     Dosage: 50 MG, QWK
     Route: 065
     Dates: start: 20111207

REACTIONS (14)
  - Pain [Recovered/Resolved]
  - Mobility decreased [Recovered/Resolved]
  - Pruritus generalised [Not Recovered/Not Resolved]
  - Thinking abnormal [Recovered/Resolved]
  - Fall [Recovered/Resolved]
  - Scar pain [Not Recovered/Not Resolved]
  - Skin haemorrhage [Not Recovered/Not Resolved]
  - Skin atrophy [Not Recovered/Not Resolved]
  - Abasia [Recovered/Resolved]
  - Muscle strain [Recovered/Resolved]
  - Speech disorder [Recovered/Resolved]
  - Temperature intolerance [Not Recovered/Not Resolved]
  - Tremor [Recovered/Resolved]
  - Psoriasis [Not Recovered/Not Resolved]

NARRATIVE: CASE EVENT DATE: 201401
